FAERS Safety Report 10045290 (Version 1)
Quarter: 2014Q1

REPORT INFORMATION
  Report Type: Other
  Country: SE (occurrence: SE)
  Receive Date: 20140328
  Receipt Date: 20140328
  Transmission Date: 20141002
  Serious: Yes (Other)
  Sender: FDA-Public Use
  Company Number: SE-BRISTOL-MYERS SQUIBB COMPANY-20544300

PATIENT
  Age: 11 Year
  Sex: Female

DRUGS (6)
  1. IFOSFAMIDE [Suspect]
     Indication: NEPHROBLASTOMA
     Dosage: 1DF = 27G/M2
  2. CARBOPLATIN [Suspect]
     Dosage: 1DF=3.6G/M2
  3. TEMOZOLOMIDE [Suspect]
     Indication: NEPHROBLASTOMA
  4. MELPHALAN [Suspect]
     Indication: NEPHROBLASTOMA
  5. THIOTEPA [Suspect]
     Indication: NEPHROBLASTOMA
  6. CYCLOPHOSPHAMIDE [Suspect]
     Dosage: 1DF=2.7G/M2

REACTIONS (1)
  - Ovarian disorder [Unknown]
